FAERS Safety Report 9796867 (Version 1)
Quarter: 2014Q1

REPORT INFORMATION
  Report Type: Spontaneous
  Country: US (occurrence: US)
  Receive Date: 20140103
  Receipt Date: 20140103
  Transmission Date: 20141002
  Serious: No
  Sender: FDA-Public Use
  Company Number: US-TEVA-454090USA

PATIENT
  Sex: Female

DRUGS (2)
  1. PROAIR HFA [Suspect]
     Indication: WHEEZING
     Route: 055
  2. ANTIBIOTIC [Concomitant]

REACTIONS (1)
  - Malaise [Not Recovered/Not Resolved]
